FAERS Safety Report 23138706 (Version 1)
Quarter: 2023Q4

REPORT INFORMATION
  Report Type: Spontaneous
  Country: US (occurrence: US)
  Receive Date: 20231102
  Receipt Date: 20231102
  Transmission Date: 20240110
  Serious: No
  Sender: FDA-Public Use
  Company Number: US-BEH-2023164905

PATIENT
  Sex: Female

DRUGS (17)
  1. HIZENTRA [Suspect]
     Active Substance: HUMAN IMMUNOGLOBULIN G
     Indication: Immunisation
     Dosage: 6 GRAM, QW
     Route: 058
     Dates: start: 20231017
  2. ASPIRIN [Concomitant]
     Active Substance: ASPIRIN
  3. AZELASTINE [Concomitant]
     Active Substance: AZELASTINE\AZELASTINE HYDROCHLORIDE
  4. BUDESONIDE [Concomitant]
     Active Substance: BUDESONIDE
  5. CALCIUM [Concomitant]
     Active Substance: CALCIUM
  6. DICLOFENAC [Concomitant]
     Active Substance: DICLOFENAC
  7. EZETIMIBE [Concomitant]
     Active Substance: EZETIMIBE
  8. FAMOTIDINE [Concomitant]
     Active Substance: FAMOTIDINE
  9. IPRATROPIUM [Concomitant]
     Active Substance: IPRATROPIUM
  10. KETOTIFEN [Concomitant]
     Active Substance: KETOTIFEN
  11. METOPROLOL [Concomitant]
     Active Substance: METOPROLOL
  12. MONTELUKAST [Concomitant]
     Active Substance: MONTELUKAST SODIUM
  13. MUPIROCIN [Concomitant]
     Active Substance: MUPIROCIN
  14. NAPROXEN [Concomitant]
     Active Substance: NAPROXEN
  15. PREDNISONE [Concomitant]
     Active Substance: PREDNISONE
  16. ROFLUMILAST [Concomitant]
     Active Substance: ROFLUMILAST
  17. VITAMIN B12 [Concomitant]
     Active Substance: CYANOCOBALAMIN

REACTIONS (6)
  - Dyspnoea [Unknown]
  - Sensitivity to weather change [Unknown]
  - No adverse event [Unknown]
  - Off label use [Unknown]
  - Lipoma [Unknown]
  - Scar [Unknown]
